FAERS Safety Report 9657597 (Version 2)
Quarter: 2014Q2

REPORT INFORMATION
  Report Type: Spontaneous
  Country: US (occurrence: US)
  Receive Date: 20131030
  Receipt Date: 20140418
  Transmission Date: 20141212
  Serious: Yes (Other)
  Sender: FDA-Public Use
  Company Number: US-NAPPMUNDI-USA-2012-0085299

PATIENT
  Age: 23 Year
  Sex: Female

DRUGS (2)
  1. OXYCONTIN TABLETS [Suspect]
     Indication: DRUG DEPENDENCE
     Dosage: UNK, SEE TEXT
  2. METHAMPHETAMINE [Suspect]
     Indication: SUBSTANCE ABUSE
     Dosage: UNK, SEE TEXT

REACTIONS (2)
  - Drug dependence [Recovered/Resolved]
  - Substance abuse [Recovered/Resolved]
